FAERS Safety Report 23402411 (Version 1)
Quarter: 2024Q1

REPORT INFORMATION
  Report Type: Other
  Country: US (occurrence: US)
  Receive Date: 20240115
  Receipt Date: 20240115
  Transmission Date: 20240410
  Serious: No
  Sender: FDA-Public Use
  Company Number: US-ELITEPHARMA-2023ELT00056

PATIENT
  Age: 26 Year
  Sex: Female
  Weight: 82 kg

DRUGS (4)
  1. DEXTROAMPHET SACCHARAT, AMPHET ASPARTATE, DEXTROAMPHET SULFATE AND AMP [Suspect]
     Active Substance: AMPHETAMINE ASPARTATE\AMPHETAMINE ASPARTATE MONOHYDRATE\AMPHETAMINE SULFATE\DEXTROAMPHETAMINE SACCHA
     Indication: Attention deficit hyperactivity disorder
     Dosage: 10 MG, AS NEEDED
     Route: 048
  2. JUNEL FE 1/20 [Concomitant]
     Active Substance: ETHINYL ESTRADIOL\NORETHINDRONE ACETATE
  3. SPIRONOLACTONE [Concomitant]
     Active Substance: SPIRONOLACTONE
  4. RIZATRIPTAN [Concomitant]
     Active Substance: RIZATRIPTAN
     Dosage: UNK, AS NEEDED

REACTIONS (8)
  - Mental impairment [Recovered/Resolved]
  - Headache [Recovered/Resolved]
  - Migraine [Recovered/Resolved]
  - Feeding disorder [Recovered/Resolved]
  - Insomnia [Recovered/Resolved]
  - Drug ineffective [Recovered/Resolved]
  - Product quality issue [Recovered/Resolved]
  - Product substitution issue [Recovered/Resolved]
